FAERS Safety Report 8175497-4 (Version None)
Quarter: 2012Q1

REPORT INFORMATION
  Report Type: 
  Country: None (occurrence: None)
  Receive Date: 20120229
  Receipt Date: 20120221
  Transmission Date: 20120608
  Serious: Yes (Disabling, Other)
  Sender: FDA-Public Use
  Company Number: US-ASTRAZENECA-2011SE09622

PATIENT
  Age: 53 Year
  Sex: Male

DRUGS (4)
  1. PRILOSEC [Suspect]
     Route: 048
  2. OXYCODONE HCL [Suspect]
     Route: 065
  3. NEXIUM [Suspect]
     Indication: GASTROOESOPHAGEAL REFLUX DISEASE
     Route: 048
  4. NEXIUM [Suspect]
     Indication: IRRITABLE BOWEL SYNDROME
     Route: 048

REACTIONS (13)
  - MUSCULOSKELETAL DISCOMFORT [None]
  - DRUG INEFFECTIVE [None]
  - AGEUSIA [None]
  - LIMB DISCOMFORT [None]
  - ACCIDENT AT WORK [None]
  - BRAIN INJURY [None]
  - GAIT DISTURBANCE [None]
  - BACK DISORDER [None]
  - DRUG PRESCRIBING ERROR [None]
  - ROTATOR CUFF SYNDROME [None]
  - PAIN [None]
  - MEMORY IMPAIRMENT [None]
  - ARTHROPATHY [None]
